FAERS Safety Report 9456103 (Version 5)
Quarter: 2013Q3

REPORT INFORMATION
  Report Type: Report from Study
  Country: US (occurrence: US)
  Receive Date: 20130813
  Receipt Date: 20130910
  Transmission Date: 20140515
  Serious: No
  Sender: FDA-Public Use
  Company Number: US-VERTEX PHARMACEUTICALS INC-2013-008713

PATIENT
  Age: 63 Year
  Sex: Female
  Weight: 57 kg

DRUGS (9)
  1. VX-950 (TELAPREVIR) [Suspect]
     Indication: HEPATITIS C
     Dosage: 750 MG, TID
     Route: 048
     Dates: start: 20130802
  2. RIBAVIRIN [Suspect]
     Indication: HEPATITIS C
     Dosage: 600/400 MG, DAILY
     Route: 048
     Dates: start: 20130802, end: 201308
  3. RIBAVIRIN [Suspect]
     Dosage: 400 MG, QD
     Route: 048
     Dates: start: 201308
  4. PEGASYS [Suspect]
     Indication: HEPATITIS C
     Dosage: 180 ?G, QW
     Route: 058
     Dates: start: 20130802
  5. MULTIVITAMIN [Concomitant]
  6. VITAMIN D [Concomitant]
  7. CALCIUM [Concomitant]
  8. MAGNESIUM [Concomitant]
  9. ZINC [Concomitant]

REACTIONS (12)
  - Cystitis [Not Recovered/Not Resolved]
  - Headache [Not Recovered/Not Resolved]
  - Appetite disorder [Unknown]
  - Asthenia [Not Recovered/Not Resolved]
  - Fatigue [Not Recovered/Not Resolved]
  - Rash [Recovered/Resolved]
  - Pruritus [Not Recovered/Not Resolved]
  - Diarrhoea [Not Recovered/Not Resolved]
  - Nausea [Not Recovered/Not Resolved]
  - Anaemia [Not Recovered/Not Resolved]
  - Dysgeusia [Unknown]
  - Vomiting [Not Recovered/Not Resolved]
